FAERS Safety Report 12669036 (Version 1)
Quarter: 2016Q3

REPORT INFORMATION
  Report Type: Spontaneous
  Country: NL (occurrence: NL)
  Receive Date: 20160819
  Receipt Date: 20160819
  Transmission Date: 20161109
  Serious: Yes (Other)
  Sender: FDA-Public Use
  Company Number: NL-009507513-1508NLD003323

PATIENT
  Age: 71 Year
  Sex: Male
  Weight: 79 kg

DRUGS (4)
  1. CARBASPIRIN CALCIUM [Concomitant]
     Active Substance: CARBASPIRIN CALCIUM
     Dosage: ONCE DAILY ONE UNIT(S)
     Route: 048
     Dates: start: 2011
  2. METOPROLOL SUCCINATE. [Concomitant]
     Active Substance: METOPROLOL SUCCINATE
     Dosage: ONCE DAILY ONE UNIT(S)
     Route: 048
     Dates: start: 201108
  3. LISINOPRIL. [Concomitant]
     Active Substance: LISINOPRIL
     Dosage: ONCE DAILY ONE UNIT(S)
     Route: 048
     Dates: start: 201108
  4. SIMVASTATIN. [Suspect]
     Active Substance: SIMVASTATIN
     Indication: PROPHYLAXIS
     Dosage: 1 TIME PER DAY 1 PIECE(S), START 40 MG DUE TO COMPLAINTS SINCE EARLY 2014 20MG
     Route: 048
     Dates: start: 2012

REACTIONS (2)
  - Muscle rupture [Recovered/Resolved]
  - Myalgia [Not Recovered/Not Resolved]

NARRATIVE: CASE EVENT DATE: 2012
